FAERS Safety Report 17561224 (Version 1)
Quarter: 2020Q1

REPORT INFORMATION
  Report Type: Spontaneous
  Country: US (occurrence: US)
  Receive Date: 20200312
  Receipt Date: 20200312
  Transmission Date: 20200409
  Serious: No
  Sender: FDA-Public Use
  Company Number: None

PATIENT
  Sex: Female

DRUGS (4)
  1. TRAMADOL. [Concomitant]
     Active Substance: TRAMADOL
  2. OCALIVA [Suspect]
     Active Substance: OBETICHOLIC ACID
     Indication: PRIMARY BILIARY CHOLANGITIS
     Route: 048
     Dates: start: 20190206
  3. URSODIOL. [Concomitant]
     Active Substance: URSODIOL
  4. HYDROXYZ [Concomitant]
     Active Substance: HYDROXYZINE HYDROCHLORIDE

REACTIONS (3)
  - Somnolence [None]
  - Fatigue [None]
  - Pruritus [None]
